FAERS Safety Report 22356929 (Version 1)
Quarter: 2023Q2

REPORT INFORMATION
  Report Type: Report from Study
  Country: RS (occurrence: RS)
  Receive Date: 20230523
  Receipt Date: 20230523
  Transmission Date: 20230721
  Serious: No
  Sender: FDA-Public Use
  Company Number: RS-009507513-2305SRB006986

PATIENT
  Age: 75 Year
  Sex: Male

DRUGS (1)
  1. MOLNUPIRAVIR [Suspect]
     Active Substance: MOLNUPIRAVIR
     Dosage: UNK
     Route: 048

REACTIONS (5)
  - Asthenia [Unknown]
  - Malaise [Unknown]
  - C-reactive protein abnormal [Unknown]
  - Drug effect less than expected [Unknown]
  - Product use issue [Unknown]
